FAERS Safety Report 17983199 (Version 1)
Quarter: 2020Q3

REPORT INFORMATION
  Report Type: Spontaneous
  Country: US (occurrence: US)
  Receive Date: 20200703
  Receipt Date: 20200703
  Transmission Date: 20201103
  Serious: Yes (Hospitalization, Other)
  Sender: FDA-Public Use
  Company Number: None

PATIENT
  Age: 73 Year
  Sex: Male
  Weight: 77 kg

DRUGS (2)
  1. HEPARIN/SODIUM CHLORIDE [Suspect]
     Active Substance: HEPARIN SODIUM\SODIUM CHLORIDE
     Indication: DEEP VEIN THROMBOSIS
     Dosage: 20 UNITS PRN OTHER
     Dates: start: 20200227, end: 20200227
  2. DEXTROSE/HEPARIN (HEPARIN NA 100UNT/ML/DEXTROSE 5% INJ) [Suspect]
     Active Substance: DEXTROSE\HEPARIN SODIUM
     Dosage: 900 UNITS PER HOUR  IV
     Route: 042
     Dates: start: 202002, end: 20200301

REACTIONS (4)
  - Portal vein thrombosis [None]
  - Mesenteric vein thrombosis [None]
  - Haematochezia [None]
  - Heparin-induced thrombocytopenia [None]

NARRATIVE: CASE EVENT DATE: 20200227
